FAERS Safety Report 5679139-9 (Version None)
Quarter: 2008Q1

REPORT INFORMATION
  Report Type: 
  Country: None (occurrence: None)
  Receive Date: 20080325
  Receipt Date: 20080321
  Transmission Date: 20080703
  Serious: Yes (Hospitalization, Disabling, Other)
  Sender: FDA-Public Use
  Company Number: US-MERCK-0705USA02792

PATIENT
  Age: 42 Year
  Sex: Female
  Weight: 46 kg

DRUGS (4)
  1. FOSAMAX [Suspect]
     Indication: OSTEOPENIA
     Route: 048
     Dates: start: 19950101
  2. FOSAMAX [Suspect]
     Route: 048
     Dates: end: 20070101
  3. FOSAMAX [Suspect]
     Indication: STRESS FRACTURE
     Route: 048
     Dates: start: 19950101
  4. FOSAMAX [Suspect]
     Route: 048
     Dates: end: 20070101

REACTIONS (14)
  - CARPAL TUNNEL SYNDROME [None]
  - CHEST PAIN [None]
  - CHRONIC SINUSITIS [None]
  - ELECTROCARDIOGRAM PR SHORTENED [None]
  - HERPES ZOSTER [None]
  - HYPERSENSITIVITY [None]
  - LOWN-GANONG-LEVINE SYNDROME [None]
  - NEUROPATHY PERIPHERAL [None]
  - OSTEOMYELITIS [None]
  - OSTEONECROSIS [None]
  - PALPITATIONS [None]
  - STRESS FRACTURE [None]
  - SUPRAVENTRICULAR EXTRASYSTOLES [None]
  - THORACIC OUTLET SYNDROME [None]
